FAERS Safety Report 4830341-5 (Version None)
Quarter: 2005Q4

REPORT INFORMATION
  Report Type: 
  Country: None (occurrence: None)
  Receive Date: 20051114
  Receipt Date: 20051102
  Transmission Date: 20060501
  Serious: No
  Sender: FDA-Public Use
  Company Number: USA0508105079

PATIENT
  Age: 67 Year
  Sex: Female

DRUGS (2)
  1. EVISTA [Suspect]
     Dates: start: 19970101, end: 20050601
  2. FOSAMAX [Concomitant]

REACTIONS (5)
  - BLADDER OPERATION [None]
  - BLOOD CHOLESTEROL INCREASED [None]
  - BLOOD PRESSURE FLUCTUATION [None]
  - FLUSHING [None]
  - HOT FLUSH [None]
